FAERS Safety Report 9498777 (Version 1)
Quarter: 2013Q3

REPORT INFORMATION
  Report Type: Spontaneous
  Country: US (occurrence: None)
  Receive Date: 20130830
  Receipt Date: 20130830
  Transmission Date: 20140515
  Serious: Yes (Other)
  Sender: FDA-Public Use
  Company Number: ACO_38094_2013

PATIENT
  Sex: Female

DRUGS (3)
  1. AMPYRA (DALFAMPRIDINE) TABLET [Suspect]
     Indication: PRODUCT USED FOR UNKNOWN INDICATION
     Dates: start: 201008
  2. PROZAC (FLUOXETINE HYDROCHLORIDE) [Concomitant]
  3. METFORMIN HCL (METFORFIN HYDROCHLORIDE) [Concomitant]

REACTIONS (2)
  - Diabetes mellitus [None]
  - Depression [None]
